FAERS Safety Report 24164967 (Version 2)
Quarter: 2024Q3

REPORT INFORMATION
  Report Type: Report from Study
  Country: JP (occurrence: JP)
  Receive Date: 20240802
  Receipt Date: 20240806
  Transmission Date: 20241017
  Serious: No
  Sender: SANOFI AVENTIS
  Company Number: JP-SA-2024SA220529

PATIENT
  Age: 84 Year
  Sex: Male
  Weight: 56.5 kg

DRUGS (7)
  1. SUTIMLIMAB [Suspect]
     Active Substance: SUTIMLIMAB
     Indication: Cold type haemolytic anaemia
     Dosage: 6.5 G, QOW
     Route: 041
     Dates: start: 20230921, end: 20231102
  2. SUTIMLIMAB [Suspect]
     Active Substance: SUTIMLIMAB
     Dosage: 6.5 G, 1X
     Route: 041
     Dates: start: 20230310, end: 20230310
  3. SUTIMLIMAB [Suspect]
     Active Substance: SUTIMLIMAB
     Dosage: 6.5 G, QOW
     Route: 041
     Dates: start: 20230316, end: 20230804
  4. SUTIMLIMAB [Suspect]
     Active Substance: SUTIMLIMAB
     Dosage: 6.5 G, 1X
     Route: 041
     Dates: start: 20230804, end: 20230804
  5. SUTIMLIMAB [Suspect]
     Active Substance: SUTIMLIMAB
     Dosage: 6.5 G, 1X
     Route: 041
     Dates: start: 20230908, end: 20230908
  6. PREDNISOLONE [Concomitant]
     Active Substance: PREDNISOLONE
     Indication: Cold type haemolytic anaemia
     Dosage: 7.5 MG, QD
     Route: 065
  7. NEXIUM [Concomitant]
     Active Substance: ESOMEPRAZOLE MAGNESIUM
     Indication: Prophylaxis
     Dosage: UNK
     Route: 048

REACTIONS (1)
  - Upper respiratory tract inflammation [Recovered/Resolved]

NARRATIVE: CASE EVENT DATE: 20231111
